FAERS Safety Report 6997288-X (Version None)
Quarter: 2010Q3

REPORT INFORMATION
  Report Type: 
  Country: None (occurrence: None)
  Receive Date: 20100918
  Receipt Date: 20090929
  Transmission Date: 20110219
  Serious: No
  Sender: FDA-Public Use
  Company Number: US-WYE-H11297709

PATIENT
  Sex: Male
  Weight: 116.22 kg

DRUGS (10)
  1. PRISTIQ [Suspect]
     Indication: DEPRESSION
     Route: 048
     Dates: start: 20090701
  2. PLAVIX [Concomitant]
  3. SYNTHROID [Concomitant]
  4. CENTRUM SILVER [Concomitant]
  5. INSULIN [Concomitant]
  6. HUMULIN R [Concomitant]
  7. AVAPRO [Concomitant]
  8. CARDURA [Concomitant]
  9. LASIX [Concomitant]
  10. PROTONIX [Concomitant]

REACTIONS (2)
  - CONDITION AGGRAVATED [None]
  - OEDEMA PERIPHERAL [None]
